FAERS Safety Report 17353033 (Version 1)
Quarter: 2020Q1

REPORT INFORMATION
  Report Type: Spontaneous
  Country: DE (occurrence: DE)
  Receive Date: 20200131
  Receipt Date: 20200131
  Transmission Date: 20200409
  Serious: Yes (Life-Threatening, Hospitalization)
  Sender: FDA-Public Use
  Company Number: DE-TEVA-2020-DE-1177514

PATIENT
  Age: 11 Month
  Sex: Male
  Weight: 9 kg

DRUGS (2)
  1. ZYMAFLUOR [Concomitant]
     Active Substance: SODIUM FLUORIDE
     Indication: PROPHYLAXIS
     Route: 048
  2. FENTANYL. [Suspect]
     Active Substance: FENTANYL
     Dosage: 37.5MCG/H
     Route: 048
     Dates: start: 20190115, end: 20190115

REACTIONS (3)
  - Accidental exposure to product by child [Unknown]
  - Respiratory depression [Unknown]
  - Product administration error [Unknown]

NARRATIVE: CASE EVENT DATE: 20190115
